FAERS Safety Report 25699473 (Version 2)
Quarter: 2025Q3

REPORT INFORMATION
  Report Type: Report from Study
  Country: US (occurrence: US)
  Receive Date: 20250819
  Receipt Date: 20250910
  Transmission Date: 20251021
  Serious: Yes (Hospitalization, Other)
  Sender: BAYER HEALTHCARE PHARMACEUTICALS INC.
  Company Number: US-BAYER-2025A086308

PATIENT
  Age: 52 Year
  Sex: Female
  Weight: 82.54 kg

DRUGS (30)
  1. ADEMPAS [Suspect]
     Active Substance: RIOCIGUAT
     Indication: Pulmonary arterial hypertension
     Dates: start: 20210415
  2. ADEMPAS [Suspect]
     Active Substance: RIOCIGUAT
     Indication: Pulmonary arterial hypertension
     Dosage: 1.5 MG, TID
     Route: 048
  3. ADEMPAS [Suspect]
     Active Substance: RIOCIGUAT
     Indication: Pulmonary arterial hypertension
     Dates: end: 20250407
  4. ADEMPAS [Suspect]
     Active Substance: RIOCIGUAT
     Indication: Pulmonary arterial hypertension
     Dates: end: 2025
  5. ADEMPAS [Suspect]
     Active Substance: RIOCIGUAT
     Indication: Pulmonary arterial hypertension
     Dates: start: 2025
  6. LASIX [Suspect]
     Active Substance: FUROSEMIDE
  7. LASIX [Suspect]
     Active Substance: FUROSEMIDE
  8. WINREVAIR [Suspect]
     Active Substance: SOTATERCEPT-CSRK
  9. NAPROXEN [Suspect]
     Active Substance: NAPROXEN
  10. VITAMIN B12 [Concomitant]
     Active Substance: CYANOCOBALAMIN
  11. KLOR-CON [Concomitant]
     Active Substance: POTASSIUM CHLORIDE
  12. ALBUTEROL\IPRATROPIUM [Concomitant]
     Active Substance: ALBUTEROL\IPRATROPIUM
  13. ALBUTEROL SULFATE [Concomitant]
     Active Substance: ALBUTEROL SULFATE
  14. FLUTICASONE PROPIONATE [Concomitant]
     Active Substance: FLUTICASONE PROPIONATE
  15. SODIUM CHLORIDE [Concomitant]
     Active Substance: SODIUM CHLORIDE
  16. VITAMIN E [Concomitant]
     Active Substance: .ALPHA.-TOCOPHEROL
  17. ALLOPURINOL [Concomitant]
     Active Substance: ALLOPURINOL
  18. FLONASE ALLERGY RELIEF [Concomitant]
     Active Substance: FLUTICASONE PROPIONATE
  19. VITAMIN B3 [Concomitant]
     Active Substance: NIACIN
  20. LEVOTHYROXINE SODIUM [Concomitant]
     Active Substance: LEVOTHYROXINE SODIUM
  21. COLCHICINE [Concomitant]
     Active Substance: COLCHICINE
  22. VENTOLIN HFA [Concomitant]
     Active Substance: ALBUTEROL SULFATE
  23. ASPIRIN [Concomitant]
     Active Substance: ASPIRIN
  24. REMODULIN [Concomitant]
     Active Substance: TREPROSTINIL
  25. MIDODRINE HYDROCHLORIDE [Concomitant]
     Active Substance: MIDODRINE HYDROCHLORIDE
  26. POLYETHYLENE GLYCOL [Concomitant]
     Active Substance: POLYETHYLENE GLYCOL
  27. FUROSEMIDE [Concomitant]
     Active Substance: FUROSEMIDE
  28. AMBRISENTAN [Concomitant]
     Active Substance: AMBRISENTAN
  29. DIPHENHYDRAMINE HYDROCHLORIDE [Concomitant]
     Active Substance: DIPHENHYDRAMINE HYDROCHLORIDE
  30. POTASSIUM CHLORIDE [Concomitant]
     Active Substance: POTASSIUM CHLORIDE

REACTIONS (18)
  - Dyspnoea [None]
  - Chest discomfort [Not Recovered/Not Resolved]
  - Thrombosis [None]
  - Loss of consciousness [Recovered/Resolved]
  - Syncope [None]
  - Dizziness [None]
  - Ulcer haemorrhage [None]
  - Dyspnoea exertional [None]
  - Gout [None]
  - Fatigue [None]
  - Pancreatic cyst [None]
  - Nausea [None]
  - Headache [None]
  - Dizziness [None]
  - Anaemia [Not Recovered/Not Resolved]
  - Hypotension [None]
  - Drug tolerance decreased [None]
  - Malaise [None]

NARRATIVE: CASE EVENT DATE: 20250601
